FAERS Safety Report 11925313 (Version 3)
Quarter: 2016Q1

REPORT INFORMATION
  Report Type: Spontaneous
  Country: US (occurrence: US)
  Receive Date: 20160118
  Receipt Date: 20160215
  Transmission Date: 20160526
  Serious: No
  Sender: FDA-Public Use
  Company Number: US-ASTRAZENECA-2016SE02255

PATIENT
  Sex: Male
  Weight: 94.3 kg

DRUGS (23)
  1. HCTZ [Concomitant]
     Active Substance: HYDROCHLOROTHIAZIDE
  2. NIACIN. [Concomitant]
     Active Substance: NIACIN
  3. GINGER. [Concomitant]
     Active Substance: GINGER
     Dosage: TWO TIMES A DAY
  4. TRICOR [Concomitant]
     Active Substance: FENOFIBRATE
  5. NOVOLOG [Concomitant]
     Active Substance: INSULIN ASPART
     Dosage: 10 U THREE TIMES A DAY
  6. VITAMIN C [Concomitant]
     Active Substance: ASCORBIC ACID
  7. TURMERIC [Concomitant]
     Active Substance: TURMERIC
     Indication: PAIN
     Dosage: 6 PILLS/DAY
  8. LOSARTAN. [Concomitant]
     Active Substance: LOSARTAN
  9. LANTUS [Concomitant]
     Active Substance: INSULIN GLARGINE
     Dosage: 12 U DAILY
     Route: 058
  10. METFORMIN [Concomitant]
     Active Substance: METFORMIN HYDROCHLORIDE
  11. BABY ASPIRIN [Concomitant]
     Active Substance: ASPIRIN
     Dosage: DAILY
  12. LYRICA [Concomitant]
     Active Substance: PREGABALIN
  13. ACTOS [Concomitant]
     Active Substance: PIOGLITAZONE HYDROCHLORIDE
  14. METOPROLOL. [Concomitant]
     Active Substance: METOPROLOL
  15. FISH OIL [Concomitant]
     Active Substance: FISH OIL
  16. LASIX [Concomitant]
     Active Substance: FUROSEMIDE
  17. CRESTOR [Concomitant]
     Active Substance: ROSUVASTATIN CALCIUM
     Route: 048
  18. NEXIUM [Concomitant]
     Active Substance: ESOMEPRAZOLE MAGNESIUM
     Route: 065
  19. MULTIVITAMIN [Concomitant]
     Active Substance: VITAMINS
     Dosage: DAILY
  20. BYDUREON [Suspect]
     Active Substance: EXENATIDE
     Indication: DIABETES MELLITUS
     Route: 058
  21. BYDUREON [Suspect]
     Active Substance: EXENATIDE
     Indication: DIABETES MELLITUS
     Dosage: VIAL 2 MG ONCE A WEEK
     Route: 058
  22. IBUPROFEN. [Concomitant]
     Active Substance: IBUPROFEN
     Indication: PAIN
     Dosage: THREE TIMES A DAY
  23. VITAMIN [Concomitant]
     Active Substance: VITAMINS

REACTIONS (5)
  - Underdose [Unknown]
  - Needle issue [Unknown]
  - Intentional product misuse [Unknown]
  - Injection site mass [Not Recovered/Not Resolved]
  - Product quality issue [Unknown]
